FAERS Safety Report 5929657-0 (Version None)
Quarter: 2008Q4

REPORT INFORMATION
  Report Type: 
  Country: None (occurrence: None)
  Receive Date: 20081024
  Receipt Date: 20081022
  Transmission Date: 20090506
  Serious: Yes (Hospitalization)
  Sender: FDA-Public Use
  Company Number: US-BRISTOL-MYERS SQUIBB COMPANY-14379887

PATIENT
  Age: 68 Year
  Sex: Male
  Weight: 97 kg

DRUGS (3)
  1. CETUXIMAB [Suspect]
     Indication: BLADDER CANCER
     Route: 042
  2. CISPLATIN [Suspect]
     Indication: BLADDER CANCER
     Route: 042
  3. GEMCITABINE [Suspect]
     Indication: BLADDER CANCER
     Route: 042
     Dates: start: 20080919

REACTIONS (2)
  - PNEUMONIA [None]
  - PULMONARY EMBOLISM [None]
